FAERS Safety Report 5242778-3 (Version None)
Quarter: 2007Q1

REPORT INFORMATION
  Report Type: 
  Country: None (occurrence: None)
  Receive Date: 20070214
  Receipt Date: 20070129
  Transmission Date: 20070707
  Serious: Yes (Other)
  Sender: FDA-Public Use
  Company Number: 8021814

PATIENT
  Age: 12 Year
  Sex: Female

DRUGS (3)
  1. KEPPRA [Suspect]
     Indication: CONVULSION
     Dosage: 500 MG /D
  2. KEPPRA [Suspect]
     Indication: CONVULSION
     Dosage: 1000 MG /D
     Dates: start: 20061101, end: 20060101
  3. KEPPRA [Suspect]
     Indication: CONVULSION
     Dosage: 1500 MG /D
     Dates: start: 20060101

REACTIONS (3)
  - COLITIS ULCERATIVE [None]
  - CONVULSION [None]
  - DISEASE RECURRENCE [None]
